FAERS Safety Report 16176547 (Version 6)
Quarter: 2020Q3

REPORT INFORMATION
  Report Type: Spontaneous
  Country: GB (occurrence: GB)
  Receive Date: 20190409
  Receipt Date: 20200730
  Transmission Date: 20201102
  Serious: Yes (Death, Hospitalization)
  Sender: FDA-Public Use
  Company Number: PHHY2018GB163370

PATIENT
  Age: 47 Year
  Sex: Female

DRUGS (63)
  1. TRASTUZUMAB EMTANSINE [Suspect]
     Active Substance: ADO-TRASTUZUMAB EMTANSINE
     Indication: BREAST CANCER
     Dosage: 350 MG, Q3W
     Route: 042
     Dates: start: 20190115
  2. HYALURONIDASE [Suspect]
     Active Substance: HYALURONIDASE
     Indication: BREAST CANCER
     Dosage: 600 MG
     Route: 058
     Dates: start: 20170918, end: 20181205
  3. ZOMORPH [Concomitant]
     Active Substance: MORPHINE SULFATE
     Dosage: 240 MG
     Route: 048
     Dates: start: 20190116
  4. GABAPENTIN. [Concomitant]
     Active Substance: GABAPENTIN
     Dosage: 600 MG
     Route: 048
     Dates: start: 20190324, end: 20190513
  5. LANSOPRAZOLE. [Concomitant]
     Active Substance: LANSOPRAZOLE
     Indication: PROPHYLAXIS
     Dosage: 30 MG, QD
     Route: 048
  6. PARACETAMOL [Concomitant]
     Active Substance: ACETAMINOPHEN
     Dosage: 4 G, QD
     Route: 042
     Dates: start: 20190324, end: 20190515
  7. DIAMORPHINE [Concomitant]
     Active Substance: DIAMORPHINE
     Indication: BONE PAIN
     Dosage: 1.25 MG, UNK
     Route: 042
     Dates: start: 20190324, end: 20190324
  8. DIAMORPHINE [Concomitant]
     Active Substance: DIAMORPHINE
     Dosage: 40 MG, UNK
     Route: 058
     Dates: start: 20190515, end: 20190516
  9. MIDAZOLAM. [Concomitant]
     Active Substance: MIDAZOLAM
     Dosage: 5 MG, QD
     Route: 058
     Dates: start: 20190515, end: 20190515
  10. MIDAZOLAM. [Concomitant]
     Active Substance: MIDAZOLAM
     Dosage: 50 MG, UNK
     Route: 058
     Dates: start: 20190516
  11. DEXAMETHASONE. [Concomitant]
     Active Substance: DEXAMETHASONE
     Dosage: 3.3 MG, QD
     Route: 048
     Dates: start: 20190514, end: 20190515
  12. LORAZEPAM. [Concomitant]
     Active Substance: LORAZEPAM
     Dosage: 1 MG
     Route: 048
     Dates: start: 20190514, end: 20190514
  13. INHIXA [Concomitant]
     Active Substance: ENOXAPARIN SODIUM
     Indication: PRODUCT USED FOR UNKNOWN INDICATION
     Dosage: 40 MG, QD
     Route: 058
     Dates: start: 20190501, end: 20190513
  14. SANDO K [Concomitant]
     Indication: HYPOKALAEMIA
     Dosage: 4 DF, QD
     Route: 048
     Dates: start: 20190513, end: 20190513
  15. MORPHINE [Concomitant]
     Active Substance: MORPHINE
     Indication: BONE PAIN
     Dosage: 10 MG
     Route: 042
     Dates: start: 20190324, end: 20190324
  16. TRASTUZUMAB. [Suspect]
     Active Substance: TRASTUZUMAB
     Indication: BREAST CANCER
     Dosage: 600 MG, UNK
     Route: 058
     Dates: start: 20170918, end: 20181205
  17. ZOMORPH [Concomitant]
     Active Substance: MORPHINE SULFATE
     Dosage: 280 MG, QD
     Route: 048
     Dates: start: 20171002
  18. ZOMORPH [Concomitant]
     Active Substance: MORPHINE SULFATE
     Dosage: 480 MG, QD
     Route: 048
     Dates: start: 20190116
  19. INFLUENZA VACCINE [Concomitant]
     Active Substance: INFLUENZA VIRUS VACCINE
     Indication: INFLUENZA
     Dosage: UNK
     Route: 058
     Dates: start: 20171211, end: 20171211
  20. DIAMORPHINE [Concomitant]
     Active Substance: DIAMORPHINE
     Dosage: 270 MG, UNK
     Route: 058
     Dates: start: 20190515, end: 20190516
  21. DEXAMETHASONE. [Concomitant]
     Active Substance: DEXAMETHASONE
     Indication: PRODUCT USED FOR UNKNOWN INDICATION
     Dosage: 2 MG, QD
     Route: 048
     Dates: start: 20190501, end: 20190501
  22. DEXAMETHASONE. [Concomitant]
     Active Substance: DEXAMETHASONE
     Dosage: 6 MG, QD
     Route: 048
     Dates: start: 20190502, end: 20190509
  23. SALBUTAMOL [Concomitant]
     Active Substance: ALBUTEROL
     Indication: PRODUCT USED FOR UNKNOWN INDICATION
     Dosage: 100 MG, UNK
     Route: 055
  24. GABAPENTIN. [Concomitant]
     Active Substance: GABAPENTIN
     Indication: MUSCULOSKELETAL CHEST PAIN
     Dosage: 900 MG, QD (300MG MORNING AND 600MG EVENING)
     Route: 048
  25. GABAPENTIN. [Concomitant]
     Active Substance: GABAPENTIN
     Dosage: 300 MG (300MG MORNING AND 600MG EVENING)
     Route: 048
     Dates: start: 20181229
  26. SAGE. [Concomitant]
     Active Substance: SAGE
     Indication: PROPHYLAXIS
     Dosage: 1 DF, UNK (1 TABLET)
     Route: 048
  27. FLUVACCIN [Concomitant]
     Active Substance: INFLUENZA VIRUS VACCINE
     Indication: ANTIVIRAL PROPHYLAXIS
     Route: 058
  28. LEVOMEPROMAZINE [Concomitant]
     Active Substance: LEVOMEPROMAZINE
     Dosage: 50 MG, UNK
     Route: 058
     Dates: start: 20190516
  29. MIDAZOLAM. [Concomitant]
     Active Substance: MIDAZOLAM
     Indication: BONE PAIN
     Dosage: 2.5 MG, UNK
     Route: 058
     Dates: start: 20190514, end: 20190514
  30. LORAZEPAM. [Concomitant]
     Active Substance: LORAZEPAM
     Indication: PRODUCT USED FOR UNKNOWN INDICATION
     Dosage: 4 MG, QD
     Route: 048
     Dates: start: 20190514, end: 20190514
  31. ZOMORPH [Concomitant]
     Active Substance: MORPHINE SULFATE
     Indication: MUSCULOSKELETAL CHEST PAIN
     Dosage: 200 MG, UNK
     Route: 048
     Dates: start: 20171001
  32. CITALOPRAM [Concomitant]
     Active Substance: CITALOPRAM HYDROBROMIDE
     Indication: PRODUCT USED FOR UNKNOWN INDICATION
     Dosage: 20 MG, QD
     Route: 048
  33. MIDAZOLAM. [Concomitant]
     Active Substance: MIDAZOLAM
     Dosage: 10 MG, UNK
     Route: 058
     Dates: start: 20190514, end: 20190515
  34. HALOPERIDOL. [Concomitant]
     Active Substance: HALOPERIDOL
     Dosage: 1 MG
     Route: 058
     Dates: start: 20190514, end: 20190514
  35. GLYCOPYRONIUM [Concomitant]
     Active Substance: GLYCOPYRRONIUM
     Dosage: 1.2 MG, UNK
     Route: 058
     Dates: start: 20190515
  36. LETROZOLE. [Suspect]
     Active Substance: LETROZOLE
     Indication: BREAST CANCER
     Dosage: 2.5 MG, QD
     Route: 048
     Dates: start: 201709
  37. ORAMORPH [Concomitant]
     Active Substance: MORPHINE SULFATE
     Indication: BONE PAIN
     Dosage: 20 MG, UNK
     Route: 048
     Dates: end: 20171002
  38. DIAMORPHINE [Concomitant]
     Active Substance: DIAMORPHINE
     Dosage: 30 MG, UNK
     Route: 058
     Dates: start: 20190514, end: 20190515
  39. MIDAZOLAM. [Concomitant]
     Active Substance: MIDAZOLAM
     Dosage: 30 MG, UNK
     Route: 058
     Dates: start: 20190515, end: 20190516
  40. DIFFLAM [Concomitant]
     Active Substance: BENZYDAMINE HYDROCHLORIDE
     Dosage: UNK
     Route: 061
     Dates: start: 20190513, end: 20190513
  41. IBUPROFEN. [Concomitant]
     Active Substance: IBUPROFEN
     Dosage: 400 MG
     Route: 048
  42. GABAPENTIN. [Concomitant]
     Active Substance: GABAPENTIN
     Dosage: 1800 MG, QD
     Route: 048
     Dates: start: 20190324, end: 20190513
  43. NITROFURANTOIN. [Concomitant]
     Active Substance: NITROFURANTOIN
     Indication: URINARY TRACT INFECTION
     Dosage: 150 MG, QD
     Route: 048
     Dates: start: 20190124, end: 20190127
  44. LEVOMEPROMAZINE [Concomitant]
     Active Substance: LEVOMEPROMAZINE
     Dosage: 25 MG, UNK
     Route: 058
     Dates: start: 20190515, end: 20190516
  45. DIFFLAM [Concomitant]
     Active Substance: BENZYDAMINE HYDROCHLORIDE
     Indication: PRODUCT USED FOR UNKNOWN INDICATION
     Dosage: 3 DF, QD
     Route: 061
     Dates: start: 20190513, end: 20190513
  46. GLYCOPYRONIUM [Concomitant]
     Active Substance: GLYCOPYRRONIUM
     Indication: PRODUCT USED FOR UNKNOWN INDICATION
     Dosage: 200 UG, UNK
     Route: 058
     Dates: start: 20190515, end: 20190516
  47. GABAPENTIN. [Concomitant]
     Active Substance: GABAPENTIN
     Indication: BONE PAIN
     Dosage: 600 MG, QD
     Route: 048
     Dates: end: 20181220
  48. GABAPENTIN. [Concomitant]
     Active Substance: GABAPENTIN
     Dosage: 200 MG
     Route: 048
     Dates: end: 20181220
  49. PARACETAMOL [Concomitant]
     Active Substance: ACETAMINOPHEN
     Indication: BONE PAIN
     Dosage: 4 G, QD
     Route: 048
  50. PARACETAMOL [Concomitant]
     Active Substance: ACETAMINOPHEN
     Dosage: 1 G
     Route: 042
     Dates: start: 20190324, end: 20190515
  51. ORAMORPH [Concomitant]
     Active Substance: MORPHINE SULFATE
     Dosage: 80 MG, UNK
     Route: 048
     Dates: start: 20190506, end: 20190513
  52. DIAMORPHINE [Concomitant]
     Active Substance: DIAMORPHINE
     Dosage: 180 MG, UNK
     Route: 058
     Dates: start: 20190514, end: 20190515
  53. DIAMORPHINE [Concomitant]
     Active Substance: DIAMORPHINE
     Dosage: 2.5 MG, UNK
     Route: 058
     Dates: start: 20190514, end: 20190514
  54. LEVOMEPROMAZINE [Concomitant]
     Active Substance: LEVOMEPROMAZINE
     Indication: RESTLESSNESS
     Dosage: 18.75 MG, UNK
     Route: 058
     Dates: start: 20190515, end: 20190515
  55. MIDAZOLAM. [Concomitant]
     Active Substance: MIDAZOLAM
     Dosage: 7.5 MG, UNK
     Route: 058
     Dates: start: 20190515, end: 20190516
  56. DEXAMETHASONE. [Concomitant]
     Active Substance: DEXAMETHASONE
     Dosage: 5 MG, QD
     Route: 048
     Dates: start: 20190510, end: 20190513
  57. IBUPROFEN. [Concomitant]
     Active Substance: IBUPROFEN
     Indication: PRODUCT USED FOR UNKNOWN INDICATION
     Dosage: 1200 MG, QD
     Route: 048
  58. DENOSUMAB [Concomitant]
     Active Substance: DENOSUMAB
     Indication: PRODUCT USED FOR UNKNOWN INDICATION
     Dosage: 120 MG, QMO
     Route: 058
     Dates: start: 20171007, end: 20181120
  59. CALCICHEW D3 FORTE [Concomitant]
     Active Substance: CALCIUM\CHOLECALCIFEROL
     Indication: PROPHYLAXIS
     Dosage: 1 DF, QD
     Route: 048
     Dates: start: 20171007
  60. LAXIDO [Concomitant]
     Active Substance: POLYETHYLENE GLYCOL 3350\POTASSIUM CHLORIDE\SODIUM BICARBONATE\SODIUM CHLORIDE
     Indication: PRODUCT USED FOR UNKNOWN INDICATION
     Dosage: 1 DF, QD
     Route: 048
  61. DIAMORPHINE [Concomitant]
     Active Substance: DIAMORPHINE
     Dosage: 350 MG, UNK
     Route: 058
     Dates: start: 20190516
  62. SENNA [Concomitant]
     Active Substance: SENNA LEAF\SENNOSIDES\SENNOSIDES A AND B
     Indication: PRODUCT USED FOR UNKNOWN INDICATION
     Dosage: 2 DF, QD
     Route: 048
  63. HALOPERIDOL. [Concomitant]
     Active Substance: HALOPERIDOL
     Indication: PRODUCT USED FOR UNKNOWN INDICATION
     Dosage: 3 MG, QD
     Route: 058
     Dates: start: 20190514, end: 20190514

REACTIONS (9)
  - Neck pain [Recovered/Resolved]
  - Skin infection [Not Recovered/Not Resolved]
  - Pneumonia [Fatal]
  - Pain in extremity [Not Recovered/Not Resolved]
  - Hypoaesthesia [Not Recovered/Not Resolved]
  - Arthralgia [Recovered/Resolved]
  - Oral candidiasis [Recovered/Resolved]
  - Skin infection [Not Recovered/Not Resolved]
  - Sinusitis [Recovered/Resolved]

NARRATIVE: CASE EVENT DATE: 20180305
